FAERS Safety Report 20532631 (Version 1)
Quarter: 2022Q1

REPORT INFORMATION
  Report Type: Spontaneous
  Country: US (occurrence: None)
  Receive Date: 20220228
  Receipt Date: 20220228
  Transmission Date: 20220423
  Serious: Yes (Death)
  Sender: FDA-Public Use
  Company Number: None

PATIENT
  Sex: Male
  Weight: 106.3 kg

DRUGS (16)
  1. ABIRATERONE [Suspect]
     Active Substance: ABIRATERONE
     Indication: Prostate cancer
     Dosage: FREQUENCY : DAILY;?
     Route: 048
  2. VITAMINS [Concomitant]
     Active Substance: VITAMINS
  3. COENZYME Q10 [Concomitant]
     Active Substance: DIETARY SUPPLEMENT\UBIDECARENONE
  4. DILTIAZEM [Concomitant]
     Active Substance: DILTIAZEM
  5. LISINOPRIL [Concomitant]
     Active Substance: LISINOPRIL
  6. LUPRON DEPOT [Concomitant]
     Active Substance: LEUPROLIDE ACETATE
  7. MULTAQ [Concomitant]
     Active Substance: DRONEDARONE
  8. OXYCODONE [Concomitant]
     Active Substance: OXYCODONE
  9. ELIQUIS [Concomitant]
     Active Substance: APIXABAN
  10. FUROSEMIDE [Concomitant]
     Active Substance: FUROSEMIDE
  11. ASPIRIN [Concomitant]
     Active Substance: ASPIRIN
  12. CLOPIDOGREL [Concomitant]
     Active Substance: CLOPIDOGREL BISULFATE
  13. ROSUVASTATIN [Concomitant]
     Active Substance: ROSUVASTATIN
  14. POTASSIUM CHLORIDE [Concomitant]
     Active Substance: POTASSIUM CHLORIDE
  15. METOPROLOL [Concomitant]
     Active Substance: METOPROLOL
  16. PREDNISONE [Concomitant]
     Active Substance: PREDNISONE

REACTIONS (1)
  - Death [None]
